FAERS Safety Report 6711383-1 (Version None)
Quarter: 2010Q2

REPORT INFORMATION
  Report Type: 
  Country: None (occurrence: None)
  Receive Date: 20100505
  Receipt Date: 20100423
  Transmission Date: 20101027
  Serious: Yes (Hospitalization)
  Sender: FDA-Public Use
  Company Number: US-JNJFOC-20061103324

PATIENT
  Age: 35 Year
  Sex: Male
  Weight: 61.24 kg

DRUGS (2)
  1. MAXIMUM STRENGTH TYLENOL ALLERGY SINUS [Suspect]
     Indication: SINUS DISORDER
     Dosage: FOUR TO FIVE CAPLETS DAILY FOR 12-15 YEARS
     Route: 048
  2. MAXIMUM STRENGTH TYLENOL ALLERGY SINUS [Suspect]
     Indication: HYPERSENSITIVITY
     Dosage: FOUR TO FIVE CAPLETS DAILY FOR 12-15 YEARS
     Route: 048

REACTIONS (2)
  - HOMICIDE [None]
  - SCHIZOPHRENIA, PARANOID TYPE [None]
